FAERS Safety Report 12816896 (Version 1)
Quarter: 2016Q4

REPORT INFORMATION
  Report Type: Report from Study
  Country: US (occurrence: US)
  Receive Date: 20161005
  Receipt Date: 20161005
  Transmission Date: 20170207
  Serious: No
  Sender: FDA-Public Use
  Company Number: US-AMGEN-USASP2015118574

PATIENT
  Age: 74 Year

DRUGS (1)
  1. PROLIA [Suspect]
     Active Substance: DENOSUMAB
     Indication: OSTEOPOROSIS
     Dosage: 60 MG, UNK
     Route: 058

REACTIONS (8)
  - Drug hypersensitivity [Unknown]
  - Fall [Unknown]
  - Dizziness [Unknown]
  - Muscle spasms [Unknown]
  - Drug intolerance [Unknown]
  - Swollen tongue [Unknown]
  - Nausea [Unknown]
  - Confusional state [Unknown]
